FAERS Safety Report 5210616-0 (Version None)
Quarter: 2006Q4

REPORT INFORMATION
  Report Type: 
  Country: None (occurrence: None)
  Receive Date: 20061106
  Receipt Date: 20060831
  Transmission Date: 20070319
  Serious: No
  Sender: FDA-Public Use
  Company Number: VNL_0197_2006

PATIENT
  Age: 72 Year
  Sex: Female
  Weight: 77.1115 kg

DRUGS (22)
  1. APOKYN [Suspect]
     Indication: PARKINSON'S DISEASE
     Dosage: 0.3 ML VARIABLE SC
     Route: 058
     Dates: start: 20060828
  2. PARCOPA [Concomitant]
  3. RELAFEN [Concomitant]
  4. SINEMET [Concomitant]
  5. COMTAN [Concomitant]
  6. PERMAX [Concomitant]
  7. LEXAPRO [Concomitant]
  8. ARICEPT [Concomitant]
  9. ZOCOR [Concomitant]
  10. ATENOLOL [Concomitant]
  11. PRILOSEC [Concomitant]
  12. VESICARE [Concomitant]
  13. LASIX [Concomitant]
  14. SUDAFED 12 HOUR [Concomitant]
  15. ASPIRIN [Concomitant]
  16. FOSAMAX [Concomitant]
  17. VICODIN [Concomitant]
  18. PROZAC [Concomitant]
  19. LOTREL [Concomitant]
  20. TRIMETHOBENZAMIDE [Concomitant]
  21. GLUCOSAMINE [Concomitant]
  22. CHONDROITIN [Concomitant]

REACTIONS (1)
  - BILE DUCT STONE [None]
